FAERS Safety Report 6585285-8 (Version None)
Quarter: 2010Q1

REPORT INFORMATION
  Report Type: 
  Country: None (occurrence: None)
  Receive Date: 20100216
  Receipt Date: 20100216
  Transmission Date: 20100710
  Serious: Yes (Hospitalization)
  Sender: FDA-Public Use
  Company Number: None

PATIENT
  Age: 80 Year
  Sex: Male
  Weight: 79.7 kg

DRUGS (2)
  1. SULFAMETHOXAZOLE AND TRIMETHOPRIM [Suspect]
     Indication: HAEMATURIA
     Dosage: ONE TAB BID PO
     Route: 048
     Dates: start: 20091014, end: 20091023
  2. SULFAMETHOXAZOLE AND TRIMETHOPRIM [Suspect]
     Indication: URINARY TRACT INFECTION
     Dosage: ONE TAB BID PO
     Route: 048
     Dates: start: 20091014, end: 20091023

REACTIONS (5)
  - FAECES DISCOLOURED [None]
  - HYPERKALAEMIA [None]
  - MUSCLE SPASMS [None]
  - PANCREATITIS ACUTE [None]
  - RENAL FAILURE ACUTE [None]
